FAERS Safety Report 5180386-3 (Version None)
Quarter: 2006Q4

REPORT INFORMATION
  Report Type: 
  Country: None (occurrence: None)
  Receive Date: 20060919
  Receipt Date: 20060712
  Transmission Date: 20070319
  Serious: No
  Sender: FDA-Public Use
  Company Number: 2006US001576

PATIENT
  Age: 76 Year
  Sex: Male

DRUGS (6)
  1. VESICARE [Suspect]
     Indication: BENIGN PROSTATIC HYPERPLASIA
     Dosage: 10 MG, UID/QD, ORAL
     Route: 048
     Dates: start: 20060401, end: 20060501
  2. AVALIDE (IRBESARTAN) [Concomitant]
  3. TOPROL-XL [Concomitant]
  4. PRAVACHOL [Concomitant]
  5. HYDROCHLOROTHIAZIDE [Concomitant]
  6. FOLIC ACID [Concomitant]

REACTIONS (1)
  - OEDEMA [None]
